FAERS Safety Report 11327759 (Version 1)
Quarter: 2015Q3

REPORT INFORMATION
  Report Type: Spontaneous
  Country: US (occurrence: US)
  Receive Date: 20150731
  Receipt Date: 20150731
  Transmission Date: 20151125
  Serious: No
  Sender: FDA-Public Use
  Company Number: US-ASTRAZENECA-2015SE71408

PATIENT
  Sex: Female

DRUGS (1)
  1. BYETTA [Suspect]
     Active Substance: EXENATIDE
     Dosage: 250 MCG / 1.2 ML PEN
     Route: 065

REACTIONS (4)
  - Product quality issue [Unknown]
  - Scar [Unknown]
  - Underdose [Unknown]
  - Drug administration error [Unknown]
